FAERS Safety Report 17742010 (Version 2)
Quarter: 2020Q2

REPORT INFORMATION
  Report Type: Spontaneous
  Country: PT (occurrence: PT)
  Receive Date: 20200505
  Receipt Date: 20200612
  Transmission Date: 20200714
  Serious: Yes (Hospitalization, Other)
  Sender: FDA-Public Use
  Company Number: PT-AUROBINDO-AUR-APL-2018-040161

PATIENT
  Age: 15 Year
  Sex: Female

DRUGS (7)
  1. FLUCLOXACILLIN [Suspect]
     Active Substance: FLUCLOXACILLIN
     Indication: STAPHYLOCOCCAL INFECTION
     Dosage: UNK
     Route: 048
  2. VANCOMYCIN POWDER FOR SOLUTION FOR INFUSION [Suspect]
     Active Substance: VANCOMYCIN
     Indication: STAPHYLOCOCCAL INFECTION
     Dosage: UNK
     Route: 042
  3. CEFTRIAXONE. [Suspect]
     Active Substance: CEFTRIAXONE
     Indication: STAPHYLOCOCCAL INFECTION
     Dosage: UNK, 8 WEEKS
     Route: 042
  4. CEFTRIAXONE. [Suspect]
     Active Substance: CEFTRIAXONE
     Dosage: UNK
     Route: 042
  5. FLUCLOXACILLIN GENERIS [Suspect]
     Active Substance: FLUCLOXACILLIN
     Indication: STAPHYLOCOCCAL INFECTION
     Dosage: UNK
     Route: 048
  6. CEFTRIAXONE. [Suspect]
     Active Substance: CEFTRIAXONE
     Dosage: UNK
     Route: 048
  7. VANCOMYCIN GENERIS [Suspect]
     Active Substance: VANCOMYCIN
     Indication: STAPHYLOCOCCAL INFECTION
     Dosage: UNK
     Route: 065

REACTIONS (11)
  - Abdominal pain upper [Recovered/Resolved]
  - Bilirubin conjugated increased [Recovered/Resolved]
  - Cholestasis [Recovered/Resolved]
  - Drug-induced liver injury [Recovered/Resolved]
  - Blood alkaline phosphatase increased [Recovered/Resolved]
  - Vomiting [Recovered/Resolved]
  - Hepatic lesion [Recovered/Resolved]
  - Blood bilirubin increased [Recovered/Resolved]
  - Cholelithiasis [Recovered/Resolved]
  - Nausea [Recovered/Resolved]
  - Transaminases increased [Recovered/Resolved]
